FAERS Safety Report 6698973-X (Version None)
Quarter: 2010Q2

REPORT INFORMATION
  Report Type: 
  Country: None (occurrence: None)
  Receive Date: 20100427
  Receipt Date: 20100420
  Transmission Date: 20101027
  Serious: Yes (Hospitalization)
  Sender: FDA-Public Use
  Company Number: B0648393A

PATIENT
  Age: 75 Year
  Sex: Female

DRUGS (4)
  1. SERETIDE [Suspect]
     Indication: ASTHMA
     Route: 055
     Dates: end: 20100407
  2. TOPIRAMATE [Concomitant]
     Indication: MIGRAINE PROPHYLAXIS
     Dosage: 25MG PER DAY
     Route: 048
     Dates: end: 20100407
  3. OMEPRAZOLE [Concomitant]
     Dosage: 20MG PER DAY
     Route: 048
     Dates: end: 20100407
  4. LORATADINE [Concomitant]
     Dosage: 10MG PER DAY
     Route: 048
     Dates: end: 20100407

REACTIONS (3)
  - CHEST PAIN [None]
  - PALPITATIONS [None]
  - VENTRICULAR EXTRASYSTOLES [None]
